FAERS Safety Report 8318835-1 (Version None)
Quarter: 2012Q2

REPORT INFORMATION
  Report Type: 
  Country: None (occurrence: None)
  Receive Date: 20120427
  Receipt Date: 20120423
  Transmission Date: 20120825
  Serious: Yes (Hospitalization, Other)
  Sender: FDA-Public Use
  Company Number: FR-PFIZER INC-2012099235

PATIENT
  Age: 48 Year
  Sex: Male

DRUGS (5)
  1. BECLOMETASON/FORMOTEROL [Concomitant]
     Dosage: UNK
     Dates: start: 20111001
  2. ATORVASTATIN [Suspect]
     Dosage: UNK
     Route: 048
     Dates: start: 20111001, end: 20120222
  3. METFORMIN [Concomitant]
     Dosage: UNK
     Dates: start: 20030101
  4. SITAGLIPTIN AND METFORMIN HYDROCHLORIDE [Suspect]
     Dosage: UNK
     Route: 048
     Dates: start: 20111001, end: 20120118
  5. SINGULAIR [Suspect]
     Dosage: UNK
     Route: 048
     Dates: start: 20111001, end: 20120222

REACTIONS (3)
  - VASCULITIS [None]
  - INTERSTITIAL LUNG DISEASE [None]
  - CHORIORETINITIS [None]
